FAERS Safety Report 20838549 (Version 1)
Quarter: 2022Q2

REPORT INFORMATION
  Report Type: Spontaneous
  Country: US (occurrence: US)
  Receive Date: 20220517
  Receipt Date: 20220517
  Transmission Date: 20220721
  Serious: Yes (Other)
  Sender: FDA-Public Use
  Company Number: US-PFIZER INC-202200654793

PATIENT
  Age: 84 Year
  Sex: Male
  Weight: 99.79 kg

DRUGS (2)
  1. QUINAPRIL [Suspect]
     Active Substance: QUINAPRIL
     Indication: Hypertension
     Dosage: 20-25MG TABLETS, TAKES IT EVERY MORNING IN THE PACKET
  2. MEMANTINE [Concomitant]
     Active Substance: MEMANTINE
     Indication: Blood cholesterol increased

REACTIONS (7)
  - Cardiac valve disease [Unknown]
  - Recalled product administered [Unknown]
  - Dizziness [Recovered/Resolved with Sequelae]
  - Vomiting [Recovered/Resolved with Sequelae]
  - Amnesia [Unknown]
  - Malaise [Not Recovered/Not Resolved]
  - Vertigo [Recovered/Resolved with Sequelae]

NARRATIVE: CASE EVENT DATE: 20211201
